FAERS Safety Report 5873082-8 (Version None)
Quarter: 2008Q3

REPORT INFORMATION
  Report Type: 
  Country: None (occurrence: None)
  Receive Date: 20080902
  Receipt Date: 20080815
  Transmission Date: 20090109
  Serious: Yes (Other)
  Sender: FDA-Public Use
  Company Number: WAES0808USA03533

PATIENT

DRUGS (1)
  1. ALDOMET [Suspect]
     Indication: PREGNANCY INDUCED HYPERTENSION
     Dosage: 1500MG/DAILY; 750 MG/DAILY

REACTIONS (4)
  - DRUG EXPOSURE DURING PREGNANCY [None]
  - EPILEPSY [None]
  - HYPOGLYCAEMIA NEONATAL [None]
  - MATERNAL DRUGS AFFECTING FOETUS [None]
